FAERS Safety Report 15868896 (Version 2)
Quarter: 2019Q1

REPORT INFORMATION
  Report Type: Spontaneous
  Country: JP (occurrence: JP)
  Receive Date: 20190125
  Receipt Date: 20190129
  Transmission Date: 20190417
  Serious: Yes (Other)
  Sender: FDA-Public Use
  Company Number: JP-PFIZER INC-2019029882

PATIENT
  Age: 50 Year
  Sex: Male

DRUGS (1)
  1. ANCARON [Suspect]
     Active Substance: AMIODARONE HYDROCHLORIDE
     Indication: VENTRICULAR FIBRILLATION
     Dosage: 200 MG, DAILY
     Route: 048

REACTIONS (3)
  - Hyperthyroidism [Recovered/Resolved]
  - Dyspnoea [Unknown]
  - Oedema peripheral [Unknown]
